FAERS Safety Report 7980936-5 (Version None)
Quarter: 2011Q4

REPORT INFORMATION
  Report Type: 
  Country: None (occurrence: None)
  Receive Date: 20111215
  Receipt Date: 20111202
  Transmission Date: 20120403
  Serious: Yes (Hospitalization, Other)
  Sender: FDA-Public Use
  Company Number: 2008BI000527

PATIENT
  Age: 28 Year
  Sex: Male
  Weight: 104 kg

DRUGS (2)
  1. TYSABRI [Suspect]
     Indication: MULTIPLE SCLEROSIS
     Route: 042
     Dates: start: 20070823
  2. TYSABRI [Suspect]
     Route: 042
     Dates: start: 20050101, end: 20050101

REACTIONS (9)
  - DEPRESSION [None]
  - STOMATITIS [None]
  - PELVIC FRACTURE [None]
  - ROAD TRAFFIC ACCIDENT [None]
  - BONE PAIN [None]
  - SUICIDE ATTEMPT [None]
  - HIP FRACTURE [None]
  - SPLEEN DISORDER [None]
  - UPPER LIMB FRACTURE [None]
